FAERS Safety Report 10393007 (Version 2)
Quarter: 2014Q3

REPORT INFORMATION
  Report Type: Spontaneous
  Country: TR (occurrence: TR)
  Receive Date: 20140819
  Receipt Date: 20140903
  Transmission Date: 20150326
  Serious: Yes (Death, Hospitalization)
  Sender: FDA-Public Use
  Company Number: TR-SA-2014SA108979

PATIENT
  Age: 80 Year
  Sex: Female
  Weight: 70 kg

DRUGS (2)
  1. ENOXAPARIN SODIUM. [Suspect]
     Active Substance: ENOXAPARIN SODIUM
     Indication: ATRIAL FIBRILLATION
     Route: 058
  2. DRUGS FOR OBSTRUCTIVE AIRWAY DISEASES [Concomitant]

REACTIONS (11)
  - Haemoglobin decreased [Fatal]
  - Abdominal wall haematoma [Fatal]
  - Abdominal mass [Fatal]
  - Cardiac arrest [Fatal]
  - Ecchymosis [Fatal]
  - Blood pressure decreased [Fatal]
  - Groin pain [Fatal]
  - Hypovolaemic shock [Fatal]
  - Abdominal tenderness [Fatal]
  - Abdominal rigidity [Fatal]
  - Heart rate increased [Fatal]
